FAERS Safety Report 6964003-5 (Version None)
Quarter: 2010Q3

REPORT INFORMATION
  Report Type: 
  Country: None (occurrence: None)
  Receive Date: 20100902
  Receipt Date: 20100902
  Transmission Date: 20110219
  Serious: Yes (Other)
  Sender: FDA-Public Use
  Company Number: None

PATIENT
  Sex: Female
  Weight: 54.4316 kg

DRUGS (1)
  1. NULYTELY-FLAVORED [Suspect]
     Indication: COLONOSCOPY
     Dosage: 10 OUNCES EVERY HALF HOUR PO
     Route: 048
     Dates: start: 20100830, end: 20100830

REACTIONS (5)
  - APTYALISM [None]
  - DRY MOUTH [None]
  - DYSPHAGIA [None]
  - SPUTUM RETENTION [None]
  - TONGUE DRY [None]
